FAERS Safety Report 7078286-7 (Version None)
Quarter: 2010Q4

REPORT INFORMATION
  Report Type: 
  Country: None (occurrence: None)
  Receive Date: 20101101
  Receipt Date: 20101101
  Transmission Date: 20110411
  Serious: Yes (Other)
  Sender: FDA-Public Use
  Company Number: None

PATIENT
  Age: 59 Year
  Sex: Male
  Weight: 124.7392 kg

DRUGS (1)
  1. SIMVASTATIN [Suspect]
     Indication: CORONARY ARTERY DISEASE
     Dosage: 40MG X 2 DAILY PO
     Route: 048
     Dates: start: 20010401, end: 20091207

REACTIONS (2)
  - FATIGUE [None]
  - MUSCLE INJURY [None]
